FAERS Safety Report 23152604 (Version 1)
Quarter: 2023Q4

REPORT INFORMATION
  Report Type: Report from Study
  Country: US (occurrence: US)
  Receive Date: 20231107
  Receipt Date: 20231107
  Transmission Date: 20240109
  Serious: Yes (Death)
  Sender: FDA-Public Use
  Company Number: US-ABBVIE-5484641

PATIENT
  Sex: Male

DRUGS (2)
  1. LINZESS [Suspect]
     Active Substance: LINACLOTIDE
     Indication: Product used for unknown indication
     Dosage: 1 CAPSULE?FORM STRENGTH:72 MICROGRAM
     Route: 048
     Dates: start: 20220917
  2. LINZESS [Suspect]
     Active Substance: LINACLOTIDE
     Indication: Product used for unknown indication
     Dosage: 1 CAPSULE?FORM STRENGTH: 145 MICROGRAM
     Route: 048
     Dates: start: 20230608

REACTIONS (1)
  - Death [Fatal]
